FAERS Safety Report 6558772-6 (Version None)
Quarter: 2010Q1

REPORT INFORMATION
  Report Type: 
  Country: None (occurrence: None)
  Receive Date: 20100129
  Receipt Date: 20100122
  Transmission Date: 20100710
  Serious: Yes (Hospitalization)
  Sender: FDA-Public Use
  Company Number: US-GENENTECH-278281

PATIENT
  Sex: Male
  Weight: 172.73 kg

DRUGS (14)
  1. XOLAIR [Suspect]
     Indication: DRUG USE FOR UNKNOWN INDICATION
     Dosage: 300 UNK, Q2W
     Route: 058
     Dates: start: 20060823, end: 20090226
  2. AVELOX [Suspect]
     Indication: DRUG USE FOR UNKNOWN INDICATION
     Dosage: UNK MG, QD
  3. NASONEX [Concomitant]
     Indication: HYPERSENSITIVITY
     Dosage: 50 A?G, QD
     Route: 045
     Dates: start: 20050101
  4. XOPENEX [Concomitant]
     Indication: ASTHMA
     Dosage: 45 A?G, UNK
     Dates: start: 20050101
  5. ADVAIR DISKUS 100/50 [Concomitant]
     Indication: ASTHMA
     Dosage: 50 A?G, BID
     Dates: start: 20050101
  6. SINGULAIR [Concomitant]
     Indication: ASTHMA
     Dosage: 10 MG, QD
     Route: 048
     Dates: start: 20050101
  7. SPIRIVA [Concomitant]
     Indication: ASTHMA
     Dosage: 18 A?G, UNK
  8. ASTELIN [Concomitant]
     Indication: HYPERSENSITIVITY
     Dosage: 137 A?G, BID
     Route: 045
     Dates: start: 20050101
  9. AUGMENTIN [Concomitant]
     Indication: DRUG USE FOR UNKNOWN INDICATION
     Dosage: 125 MG, BID
  10. PREDNISONE [Concomitant]
     Indication: ASTHMA
     Dosage: 20 MG, UNK
     Route: 048
     Dates: start: 20050407
  11. PREDNISONE [Concomitant]
     Indication: HYPERSENSITIVITY
  12. EPIPEN [Concomitant]
     Indication: HYPERSENSITIVITY
     Dosage: UNK
     Dates: start: 20050407
  13. ZYRTEC [Concomitant]
     Indication: HYPERSENSITIVITY
     Dosage: 10 MG, UNK
     Route: 048
     Dates: start: 20050407
  14. PROVENTIL [Concomitant]
     Indication: ASTHMA
     Dosage: UNK
     Dates: start: 20050407

REACTIONS (4)
  - ANAPHYLACTIC REACTION [None]
  - FLUSHING [None]
  - PRURITUS [None]
  - RESPIRATORY DISTRESS [None]
